FAERS Safety Report 5104550-4 (Version None)
Quarter: 2006Q3

REPORT INFORMATION
  Report Type: 
  Country: None (occurrence: None)
  Receive Date: 20060914
  Receipt Date: 20060905
  Transmission Date: 20061208
  Serious: Yes (Death)
  Sender: FDA-Public Use
  Company Number: US-JNJFOC-20060902062

PATIENT
  Age: 17 Year
  Sex: Male

DRUGS (2)
  1. FENTANYL [Suspect]
     Indication: UNEVALUABLE EVENT
     Route: 065
  2. COCAINE [Suspect]
     Indication: UNEVALUABLE EVENT
     Route: 065

REACTIONS (1)
  - INTENTIONAL DRUG MISUSE [None]
